FAERS Safety Report 9034366 (Version 2)
Quarter: 2013Q4

REPORT INFORMATION
  Report Type: Spontaneous
  Country: US (occurrence: None)
  Receive Date: 20130111
  Receipt Date: 20131025
  Transmission Date: 20140711
  Serious: Yes (Death, Other)
  Sender: FDA-Public Use
  Company Number: ACO_33668_2013

PATIENT
  Sex: Female

DRUGS (2)
  1. AMPYRA [Suspect]
     Indication: GAIT DISTURBANCE
     Dosage: UNK,  ORAL?08/--/2010 TO UNK
     Dates: start: 20100518
  2. COPAXONE [Concomitant]

REACTIONS (2)
  - Death [None]
  - Lung cancer metastatic [None]
